FAERS Safety Report 14898859 (Version 1)
Quarter: 2018Q2

REPORT INFORMATION
  Report Type: Spontaneous
  Country: US (occurrence: US)
  Receive Date: 20180427
  Receipt Date: 20180427
  Transmission Date: 20180711
  Serious: Yes (Death, Life-Threatening, Hospitalization)
  Sender: FDA-Public Use
  Company Number: None

PATIENT
  Age: 69 Year
  Sex: Female
  Weight: 70 kg

DRUGS (2)
  1. MIRCERA [Suspect]
     Active Substance: METHOXY POLYETHYLENE GLYCOL-EPOETIN BETA
     Indication: END STAGE RENAL DISEASE
     Dosage: 200 MCG EVERY 2 WEEKS INTRAVENOUS PUSH
     Route: 042
     Dates: start: 20180217, end: 20180414
  2. MIRCERA [Suspect]
     Active Substance: METHOXY POLYETHYLENE GLYCOL-EPOETIN BETA
     Indication: ANAEMIA
     Dosage: 200 MCG EVERY 2 WEEKS INTRAVENOUS PUSH
     Route: 042
     Dates: start: 20180217, end: 20180414

REACTIONS (6)
  - Malaise [None]
  - Unresponsive to stimuli [None]
  - Nausea [None]
  - Blood pressure decreased [None]
  - Heart rate increased [None]
  - Dyspnoea [None]

NARRATIVE: CASE EVENT DATE: 20180414
